FAERS Safety Report 20509263 (Version 1)
Quarter: 2022Q1

REPORT INFORMATION
  Report Type: Spontaneous
  Country: US (occurrence: US)
  Receive Date: 20220223
  Receipt Date: 20220223
  Transmission Date: 20220423
  Serious: No
  Sender: FDA-Public Use
  Company Number: US-BIOGEN-2022BI01098494

PATIENT
  Age: 21 Year

DRUGS (1)
  1. SPINRAZA [Suspect]
     Active Substance: NUSINERSEN
     Indication: Spinal muscular atrophy
     Dosage: MOST RECENT DOSE ADMINISTRATION ON 14 FEB 2022.
     Route: 065
     Dates: end: 20220214

REACTIONS (3)
  - Procedural headache [Unknown]
  - Procedural nausea [Unknown]
  - Procedural pain [Unknown]

NARRATIVE: CASE EVENT DATE: 20220216
